FAERS Safety Report 9312429 (Version 2)
Quarter: 2014Q3

REPORT INFORMATION
  Report Type: Spontaneous
  Country: JP (occurrence: JP)
  Receive Date: 20130528
  Receipt Date: 20140819
  Transmission Date: 20150326
  Serious: Yes (Other)
  Sender: FDA-Public Use
  Company Number: JP-JNJFOC-20130505298

PATIENT
  Age: 77 Year
  Sex: Female

DRUGS (8)
  1. TRAMCET [Suspect]
     Active Substance: ACETAMINOPHEN\TRAMADOL
     Indication: BACK PAIN
     Dosage: 8 TABLETS 1 PER 1 DAY
     Route: 048
     Dates: end: 20130508
  2. MYSLEE [Concomitant]
     Active Substance: ZOLPIDEM TARTRATE
     Dosage: 1 PER 1 DAY
     Route: 048
  3. SENNOSIDE [Concomitant]
     Active Substance: SENNOSIDES
     Dosage: 1 PER 1 DAY
     Route: 048
  4. JANUVIA [Concomitant]
     Active Substance: SITAGLIPTIN PHOSPHATE
     Route: 048
  5. NAUZELIN [Concomitant]
     Active Substance: DOMPERIDONE
     Dosage: 1 PER 1 DAY
     Route: 048
  6. MICARDIS [Concomitant]
     Active Substance: TELMISARTAN
     Dosage: 1 PER 1 DAY
     Route: 048
  7. TRAMCET [Suspect]
     Active Substance: ACETAMINOPHEN\TRAMADOL
     Indication: PAIN
     Dosage: 8 TABLETS 1 PER 1 DAY
     Route: 048
     Dates: end: 20130508
  8. LYRICA [Concomitant]
     Active Substance: PREGABALIN
     Dosage: 1 PER 1 DAY
     Route: 048

REACTIONS (3)
  - Ureteric cancer [Unknown]
  - Malignant neoplasm of renal pelvis [Unknown]
  - Inadequate analgesia [Recovered/Resolved]

NARRATIVE: CASE EVENT DATE: 20130508
